FAERS Safety Report 16022133 (Version 1)
Quarter: 2019Q2

REPORT INFORMATION
  Report Type: Spontaneous
  Country: US (occurrence: US)
  Receive Date: 20190301
  Receipt Date: 20190301
  Transmission Date: 20190711
  Serious: Yes (Hospitalization)
  Sender: FDA-Public Use
  Company Number: None

PATIENT
  Age: 59 Year
  Sex: Female

DRUGS (6)
  1. METHOTREXATE TAB 2.5MG [Concomitant]
     Active Substance: METHOTREXATE
  2. FOLIC ACID TAB 1MG [Concomitant]
  3. ENBREL [Suspect]
     Active Substance: ETANERCEPT
     Indication: RHEUMATOID ARTHRITIS
     Dosage: ?          OTHER FREQUENCY:EVERY WEEK;?
     Route: 058
     Dates: start: 20190122
  4. ALLOPURINOL TAB 300MG [Concomitant]
  5. NAPROXEN TAB 500MG [Concomitant]
  6. PREDNISONE TAB 5MG [Concomitant]
     Active Substance: PREDNISONE

REACTIONS (1)
  - Limb operation [None]

NARRATIVE: CASE EVENT DATE: 20190228
